FAERS Safety Report 5146714-X (Version None)
Quarter: 2006Q4

REPORT INFORMATION
  Report Type: 
  Country: None (occurrence: None)
  Receive Date: 20061109
  Receipt Date: 20060929
  Transmission Date: 20070319
  Serious: Yes (Hospitalization)
  Sender: FDA-Public Use
  Company Number: FR-BRISTOL-MYERS SQUIBB COMPANY-13534698

PATIENT
  Age: 60 Year
  Sex: Male

DRUGS (1)
  1. CETUXIMAB [Suspect]
     Indication: LARYNGEAL CANCER
     Route: 042
     Dates: start: 20060918, end: 20060918

REACTIONS (2)
  - ACUTE CORONARY SYNDROME [None]
  - INFUSION RELATED REACTION [None]
